FAERS Safety Report 7630818-3 (Version None)
Quarter: 2011Q3

REPORT INFORMATION
  Report Type: 
  Country: None (occurrence: None)
  Receive Date: 20110723
  Receipt Date: 20110714
  Transmission Date: 20111222
  Serious: Yes (Hospitalization, Other)
  Sender: FDA-Public Use
  Company Number: GB-ABBOTT-11P-167-0839412-00

PATIENT
  Sex: Female

DRUGS (8)
  1. MULTI-VITAMINS [Concomitant]
     Indication: PRODUCT USED FOR UNKNOWN INDICATION
     Dosage: MANE
     Route: 048
  2. PREDNISOLONE [Concomitant]
     Indication: PRODUCT USED FOR UNKNOWN INDICATION
     Dosage: MANE
     Route: 048
  3. LANSOPRAZOLE [Concomitant]
     Indication: PRODUCT USED FOR UNKNOWN INDICATION
     Dosage: EVENING
     Route: 048
  4. DICLOFENAC SODIUM [Concomitant]
     Indication: PRODUCT USED FOR UNKNOWN INDICATION
     Dosage: 140MG DAILY, 75MG 2 IN 1 DAY
     Route: 048
  5. CALCICHEW D3 [Concomitant]
     Indication: PRODUCT USED FOR UNKNOWN INDICATION
     Dosage: MANE
     Route: 048
  6. AZULFIDINE [Concomitant]
     Indication: PRODUCT USED FOR UNKNOWN INDICATION
     Dosage: 1000MG DAILY, 500MG 2 IN 1 DAY
     Route: 048
     Dates: start: 20060101
  7. HUMIRA [Suspect]
     Indication: RHEUMATOID ARTHRITIS
     Route: 058
     Dates: start: 20030215
  8. CLARITHROMYCIN [Concomitant]
     Indication: PRODUCT USED FOR UNKNOWN INDICATION
     Dosage: 1000MG DAILY, 500MG, 2 IN 1 DAY
     Route: 048
     Dates: start: 20101228

REACTIONS (24)
  - PARESIS [None]
  - JOINT RANGE OF MOTION DECREASED [None]
  - PYREXIA [None]
  - PARAESTHESIA [None]
  - INFECTION [None]
  - PURULENT DISCHARGE [None]
  - JOINT STIFFNESS [None]
  - JOINT SWELLING [None]
  - PAIN [None]
  - RHEUMATOID ARTHRITIS [None]
  - LOWER RESPIRATORY TRACT INFECTION [None]
  - TENDON RUPTURE [None]
  - NEUROPATHY PERIPHERAL [None]
  - SYNOVITIS [None]
  - NERVE COMPRESSION [None]
  - HYPOAESTHESIA [None]
  - MOVEMENT DISORDER [None]
  - PAIN IN EXTREMITY [None]
  - SYNOVIAL CYST [None]
  - DEVICE FAILURE [None]
  - EXCORIATION [None]
  - COUGH [None]
  - MALAISE [None]
  - ARTHRALGIA [None]
